FAERS Safety Report 19888459 (Version 1)
Quarter: 2021Q3

REPORT INFORMATION
  Report Type: Spontaneous
  Country: DE (occurrence: DE)
  Receive Date: 20210927
  Receipt Date: 20210927
  Transmission Date: 20211014
  Serious: Yes (Hospitalization)
  Sender: FDA-Public Use
  Company Number: PHHY2019DE200618

PATIENT
  Sex: Female
  Weight: 56 kg

DRUGS (4)
  1. PEGFILGRASTIM [Suspect]
     Active Substance: PEGFILGRASTIM
     Indication: PRODUCT USED FOR UNKNOWN INDICATION
     Dosage: STRENGTH: 6 MGCYCLE: 1
     Route: 065
     Dates: start: 20190626, end: 20190626
  2. PEGFILGRASTIM [Suspect]
     Active Substance: PEGFILGRASTIM
     Dosage: STRENGTH: 6 MGCYCLE: 2
     Route: 065
     Dates: start: 20190711, end: 20190711
  3. PEGFILGRASTIM [Suspect]
     Active Substance: PEGFILGRASTIM
     Dosage: STRENGTH: 6 MGCYCLE: 4
     Route: 065
     Dates: start: 20190809, end: 20190809
  4. PEGFILGRASTIM [Suspect]
     Active Substance: PEGFILGRASTIM
     Dosage: STRENGTH: 6 MGCYCLE: 3
     Route: 065
     Dates: start: 20190725, end: 20190725

REACTIONS (1)
  - Administration site infection [Recovered/Resolved]

NARRATIVE: CASE EVENT DATE: 20190812
